FAERS Safety Report 8581128-1 (Version None)
Quarter: 2012Q3

REPORT INFORMATION
  Report Type: 
  Country: None (occurrence: None)
  Receive Date: 20120809
  Receipt Date: 20120802
  Transmission Date: 20120928
  Serious: Yes (Other)
  Sender: FDA-Public Use
  Company Number: GR-JNJFOC-20120801307

PATIENT

DRUGS (6)
  1. OPIATES [Concomitant]
     Indication: CHEST PAIN
     Route: 065
  2. ANTI-INFLAMMATORY DRUGS [Concomitant]
     Indication: CHEST PAIN
     Route: 065
  3. BRONCHODILATOR, NOS [Concomitant]
     Indication: DYSPNOEA
     Route: 065
  4. DOXORUBICIN HYDROCHLORIDE [Suspect]
     Indication: PLEURAL MESOTHELIOMA MALIGNANT
     Dosage: ON DAY 4; EVERY 28 DAYS
     Route: 042
  5. HYCAMTIN [Suspect]
     Indication: PLEURAL MESOTHELIOMA MALIGNANT
     Dosage: DAYS 1-3; EVERY 28 DAYS
     Route: 042
  6. ANTIEMETIC [Concomitant]
     Indication: PROPHYLAXIS
     Route: 065

REACTIONS (2)
  - OFF LABEL USE [None]
  - NEUROPATHY PERIPHERAL [None]
